FAERS Safety Report 7525236-2 (Version None)
Quarter: 2011Q2

REPORT INFORMATION
  Report Type: 
  Country: None (occurrence: None)
  Receive Date: 20110526
  Receipt Date: 20110510
  Transmission Date: 20111010
  Serious: Yes (Other)
  Sender: FDA-Public Use
  Company Number: FK201101017

PATIENT
  Age: 58 Year
  Sex: Male

DRUGS (6)
  1. OXALIPLATIN [Suspect]
     Indication: COLORECTAL CANCER METASTATIC
  2. BEVACIZUMAB (BEVACIZUMAB) (BEVACIZUMAB) [Suspect]
     Indication: COLORECTAL CANCER METASTATIC
  3. FLUOROURACIL [Suspect]
     Indication: COLORECTAL CANCER METASTATIC
  4. CAPECITABINE [Suspect]
     Indication: COLORECTAL CANCER METASTATIC
  5. LEUCOVORIN CALCIUM [Suspect]
     Indication: COLORECTAL CANCER METASTATIC
  6. IRINOTECAN HCL [Suspect]
     Indication: COLORECTAL CANCER METASTATIC

REACTIONS (4)
  - PYREXIA [None]
  - PNEUMONIA [None]
  - INTERSTITIAL LUNG DISEASE [None]
  - ORGANISING PNEUMONIA [None]
